FAERS Safety Report 7171267-4 (Version None)
Quarter: 2010Q4

REPORT INFORMATION
  Report Type: 
  Country: None (occurrence: None)
  Receive Date: 20101217
  Receipt Date: 20101208
  Transmission Date: 20110411
  Serious: Yes (Hospitalization)
  Sender: FDA-Public Use
  Company Number: US-PURDUE-USA-2010-0047511

PATIENT
  Sex: Male
  Weight: 90.703 kg

DRUGS (7)
  1. OXYCONTIN [Suspect]
     Indication: BACK PAIN
     Dosage: 8 TABLET, DAILY
     Route: 048
     Dates: start: 20100801, end: 20100101
  2. HUMALOG [Concomitant]
     Indication: DIABETES MELLITUS
  3. LANTUS [Concomitant]
     Indication: DIABETES MELLITUS
     Dosage: 50 UNIT, UNK
  4. METFORMIN [Concomitant]
     Indication: DIABETES MELLITUS
     Dosage: 2500 MG, DAILY
  5. METHADONE HCL [Concomitant]
     Indication: PAIN
     Dosage: 10 MG, PRN
  6. ALLOPURINOL [Concomitant]
     Indication: GOUT
     Dosage: 300 MG, DAILY
  7. FANTAGIN [Concomitant]
     Indication: ANTIEMETIC SUPPORTIVE CARE

REACTIONS (5)
  - BLOOD GLUCOSE INCREASED [None]
  - DRUG EFFECT DECREASED [None]
  - DRUG EFFECT DELAYED [None]
  - NAUSEA [None]
  - WEIGHT INCREASED [None]
